FAERS Safety Report 21293989 (Version 3)
Quarter: 2022Q4

REPORT INFORMATION
  Report Type: Spontaneous
  Country: BR (occurrence: BR)
  Receive Date: 20220905
  Receipt Date: 20221219
  Transmission Date: 20230112
  Serious: Yes (Other)
  Sender: FDA-Public Use
  Company Number: BR-GLAXOSMITHKLINE-BR2020AMR047667

PATIENT

DRUGS (3)
  1. BENLYSTA [Suspect]
     Active Substance: BELIMUMAB
     Indication: Systemic lupus erythematosus
     Dosage: 120 MG
     Route: 042
     Dates: start: 20200324
  2. OMEPRAZOLE [Suspect]
     Active Substance: OMEPRAZOLE
     Indication: Product used for unknown indication
     Dosage: UNK
  3. PANTOPRAZOLE MAGNESIUM [Suspect]
     Active Substance: PANTOPRAZOLE MAGNESIUM
     Indication: Product used for unknown indication
     Dosage: UNK , 40 MG

REACTIONS (22)
  - Kidney infection [Unknown]
  - Gastrointestinal infection [Unknown]
  - Immunodeficiency [Unknown]
  - Malaise [Recovered/Resolved]
  - Urinary tract infection [Recovered/Resolved]
  - Influenza [Recovered/Resolved]
  - Weight increased [Not Recovered/Not Resolved]
  - Anxiety [Unknown]
  - Depression [Unknown]
  - Renal pain [Recovered/Resolved]
  - Illness [Unknown]
  - Urinary tract infection [Unknown]
  - Tonsillitis [Unknown]
  - Pain [Unknown]
  - Oropharyngeal pain [Unknown]
  - Infection [Unknown]
  - Gastritis [Not Recovered/Not Resolved]
  - Abdominal pain upper [Unknown]
  - Inappropriate schedule of product administration [Not Recovered/Not Resolved]
  - Product dose omission issue [Unknown]
  - Circumstance or information capable of leading to medication error [Unknown]
  - Product supply issue [Unknown]

NARRATIVE: CASE EVENT DATE: 20220721
